FAERS Safety Report 13144074 (Version 2)
Quarter: 2017Q2

REPORT INFORMATION
  Report Type: Spontaneous
  Country: US (occurrence: US)
  Receive Date: 20170124
  Receipt Date: 20170502
  Transmission Date: 20170830
  Serious: No
  Sender: FDA-Public Use
  Company Number: US-PFIZER INC-2017031018

PATIENT
  Age: 30 Year
  Sex: Female
  Weight: 57 kg

DRUGS (12)
  1. LYRICA [Suspect]
     Active Substance: PREGABALIN
     Dosage: UNK, 2X/DAY (50MG CAPSULE 2 IN THE MORNING AND 1 AT NIGHT)
     Route: 048
  2. NORCO [Concomitant]
     Active Substance: ACETAMINOPHEN\HYDROCODONE BITARTRATE
     Dosage: UNK UNK, AS NEEDED, ( 7.5/325 2X AS NEEDED)
  3. LYRICA [Suspect]
     Active Substance: PREGABALIN
     Dosage: 250 MG, DAILY (50MG CAPSULE 2 IN THE MORNING, 1 IN THE AFTERNOON, AND 2 AT NIGHT)
     Route: 048
     Dates: end: 201608
  4. HYDROCODONE [Concomitant]
     Active Substance: HYDROCODONE
     Indication: PAIN
     Dosage: 7.5/3.25 MG, AS NEEDED UP TO 2 A DAY
     Dates: start: 201604
  5. ZOLOFT [Concomitant]
     Active Substance: SERTRALINE HYDROCHLORIDE
     Dosage: 100 MG, 1X/DAY, (ONCE MORNING)
  6. LYRICA [Suspect]
     Active Substance: PREGABALIN
     Dosage: 100 MG, 3X/DAY(50MG CAPSULE 2 IN THE MORNING, 2 IN THE AFTERNOON, AND 2 AT NIGHT)
     Route: 048
  7. FLEXERIL [Concomitant]
     Active Substance: CYCLOBENZAPRINE HYDROCHLORIDE
     Dosage: 10 MG, AS NEEDED, (3X)
  8. HYDROCODONE BITARTRATE AND ACETAMINOPHEN [Concomitant]
     Active Substance: ACETAMINOPHEN\HYDROCODONE BITARTRATE
     Dosage: UNK UNK, AS NEEDED (7.5-325, TAKE 1 TO 2 TABLETS BY MOUTH DAILY AS NEEDED)
     Route: 048
  9. LYRICA [Suspect]
     Active Substance: PREGABALIN
     Dosage: 100 MG, 2X/DAY(50MG CAPSULE 2 IN THE MORNING AND 2 AT NIGHT)
     Route: 048
  10. ATIVAN [Concomitant]
     Active Substance: LORAZEPAM
     Dosage: 2 MG, AS NEEDED
  11. LYRICA [Suspect]
     Active Substance: PREGABALIN
     Dosage: 100 MG, 3X/DAY
     Route: 048
  12. LYRICA [Suspect]
     Active Substance: PREGABALIN
     Indication: SPINAL CORD INJURY
     Dosage: 50 MG, 2X/DAY
     Route: 048
     Dates: start: 2016

REACTIONS (3)
  - Drug dose omission [Unknown]
  - Hallucination [Recovered/Resolved]
  - Drug effect incomplete [Unknown]

NARRATIVE: CASE EVENT DATE: 2016
